FAERS Safety Report 20720301 (Version 1)
Quarter: 2022Q2

REPORT INFORMATION
  Report Type: Spontaneous
  Country: GB (occurrence: GB)
  Receive Date: 20220418
  Receipt Date: 20220418
  Transmission Date: 20220720
  Serious: Yes (Other)
  Sender: FDA-Public Use
  Company Number: GB-ABBVIE-22K-167-4362363-00

PATIENT

DRUGS (11)
  1. VALPROATE SODIUM [Suspect]
     Active Substance: VALPROATE SODIUM
     Indication: Seizure cluster
     Dosage: DAILY DOSE REDUCED BY 100 MG
     Route: 065
  2. BRIVARACETAM [Suspect]
     Active Substance: BRIVARACETAM
     Indication: Seizure
     Route: 065
     Dates: start: 20200711
  3. CANNABIDIOL [Suspect]
     Active Substance: CANNABIDIOL
     Indication: Lennox-Gastaut syndrome
     Route: 048
  4. CANNABIDIOL [Suspect]
     Active Substance: CANNABIDIOL
     Route: 048
     Dates: start: 2021
  5. CANNABIDIOL [Suspect]
     Active Substance: CANNABIDIOL
     Route: 048
     Dates: start: 202008
  6. CANNABIDIOL [Suspect]
     Active Substance: CANNABIDIOL
     Route: 048
     Dates: start: 2021
  7. CLOBAZAM [Concomitant]
     Active Substance: CLOBAZAM
     Indication: Product used for unknown indication
     Dates: start: 202008
  8. EPILIM [Concomitant]
     Active Substance: VALPROATE SODIUM
     Indication: Product used for unknown indication
     Dates: start: 202008
  9. LAMOTRIGINE [Concomitant]
     Active Substance: LAMOTRIGINE
     Indication: Product used for unknown indication
     Dates: start: 202008
  10. PERAMPANEL [Concomitant]
     Active Substance: PERAMPANEL
     Indication: Product used for unknown indication
     Dates: start: 202008
  11. MIDAZOLAM [Concomitant]
     Active Substance: MIDAZOLAM
     Indication: Product used for unknown indication

REACTIONS (13)
  - Unresponsive to stimuli [Unknown]
  - Seizure [Recovering/Resolving]
  - Hypophagia [Unknown]
  - Balance disorder [Recovering/Resolving]
  - Mobility decreased [Unknown]
  - Daydreaming [Recovering/Resolving]
  - Weight bearing difficulty [Recovering/Resolving]
  - Sleep disorder [Recovering/Resolving]
  - Alanine aminotransferase increased [Recovering/Resolving]
  - Screaming [Recovering/Resolving]
  - Diarrhoea [Recovered/Resolved]
  - Somnolence [Recovering/Resolving]
  - Rash [Recovering/Resolving]
